FAERS Safety Report 5092134-6 (Version None)
Quarter: 2006Q3

REPORT INFORMATION
  Report Type: 
  Country: None (occurrence: None)
  Receive Date: 20060825
  Receipt Date: 20060821
  Transmission Date: 20061208
  Serious: Yes (Hospitalization, Other)
  Sender: FDA-Public Use
  Company Number: HQWYE334110AUG06

PATIENT
  Age: 48 Year
  Sex: Male

DRUGS (3)
  1. TIGECYCLINE (TIGECYCLINE, INJECTION) [Suspect]
     Indication: LARGE INTESTINE PERFORATION
     Dosage: 100 MG LOADING DOSE FOLLOWED BY 50 MG EVERY 12 HOURS INTRAVENOUS
     Route: 042
     Dates: start: 20060709, end: 20060715
  2. HEPARIN [Concomitant]
  3. GRAVOL TAB [Concomitant]

REACTIONS (3)
  - ABDOMINAL ABSCESS [None]
  - GASTROINTESTINAL STOMA COMPLICATION [None]
  - POST PROCEDURAL COMPLICATION [None]
